FAERS Safety Report 7745359-2 (Version None)
Quarter: 2011Q3

REPORT INFORMATION
  Report Type: 
  Country: None (occurrence: None)
  Receive Date: 20110829
  Receipt Date: 20110824
  Transmission Date: 20111222
  Serious: Yes (Death)
  Sender: FDA-Public Use
  Company Number: 2011SP039904

PATIENT
  Age: 76 Year
  Sex: Male
  Weight: 80 kg

DRUGS (4)
  1. FENTANYL [Concomitant]
  2. METOCLOPRAMIDE HYDROCHLORIDE [Concomitant]
  3. MIRTAZAPINE [Suspect]
     Indication: DEPRESSION
     Dosage: 15 MG;  ;PO
     Route: 048
     Dates: start: 20110213, end: 20110216
  4. OLICLINOMEL   /01716901/ [Concomitant]

REACTIONS (1)
  - STEVENS-JOHNSON SYNDROME [None]
